FAERS Safety Report 25520160 (Version 1)
Quarter: 2025Q3

REPORT INFORMATION
  Report Type: Spontaneous
  Country: US (occurrence: US)
  Receive Date: 20250704
  Receipt Date: 20250704
  Transmission Date: 20251020
  Serious: No
  Sender: BAUSCH AND LOMB
  Company Number: US-BAUSCH-BL-2025-007820

PATIENT
  Age: 52 Year

DRUGS (14)
  1. BUPROPION [Suspect]
     Active Substance: BUPROPION
     Indication: Schizoaffective disorder
     Dosage: XL (EXTENDED RELEASE)
     Route: 065
     Dates: start: 2019, end: 2024
  2. BUSPIRONE [Suspect]
     Active Substance: BUSPIRONE HYDROCHLORIDE
     Indication: Schizoaffective disorder
     Route: 065
     Dates: start: 2019
  3. ESCITALOPRAM [Suspect]
     Active Substance: ESCITALOPRAM OXALATE
     Indication: Schizoaffective disorder
     Route: 065
     Dates: start: 2019
  4. HALOPERIDOL DECANOATE [Suspect]
     Active Substance: HALOPERIDOL DECANOATE
     Indication: Schizoaffective disorder
     Route: 030
     Dates: start: 2019
  5. CLOZAPINE [Suspect]
     Active Substance: CLOZAPINE
     Indication: Schizoaffective disorder
     Dosage: 100MG IN THE MORNING AND 400MG AT BEDTIME
     Route: 065
     Dates: start: 2019, end: 2024
  6. CLOZAPINE [Suspect]
     Active Substance: CLOZAPINE
     Dosage: AT BEDTIME
     Route: 065
     Dates: start: 2024, end: 2024
  7. CLOZAPINE [Suspect]
     Active Substance: CLOZAPINE
     Dosage: AT BEDTIME
     Route: 065
     Dates: start: 2024
  8. MELOXICAM [Concomitant]
     Active Substance: MELOXICAM
     Indication: Product used for unknown indication
  9. ATORVASTATIN [Concomitant]
     Active Substance: ATORVASTATIN
     Indication: Product used for unknown indication
  10. LIRAGLUTIDE [Concomitant]
     Active Substance: LIRAGLUTIDE
     Indication: Product used for unknown indication
     Route: 058
  11. FAMOTIDINE [Concomitant]
     Active Substance: FAMOTIDINE
     Indication: Product used for unknown indication
  12. LEVOTHYROXINE [Concomitant]
     Active Substance: LEVOTHYROXINE
     Indication: Product used for unknown indication
  13. INSULIN ASPART [Concomitant]
     Active Substance: INSULIN ASPART
     Indication: Product used for unknown indication
  14. ASPIRIN [Concomitant]
     Active Substance: ASPIRIN
     Indication: Product used for unknown indication

REACTIONS (2)
  - Drug interaction [Recovered/Resolved]
  - Sedation [Recovering/Resolving]

NARRATIVE: CASE EVENT DATE: 20190101
